FAERS Safety Report 12806440 (Version 3)
Quarter: 2016Q4

REPORT INFORMATION
  Report Type: Spontaneous
  Country: FR (occurrence: FR)
  Receive Date: 20161004
  Receipt Date: 20161010
  Transmission Date: 20170207
  Serious: Yes (Other)
  Sender: FDA-Public Use
  Company Number: FR-ABBVIE-16K-056-1741172-00

PATIENT
  Age: 48 Year
  Sex: Female
  Weight: 92 kg

DRUGS (6)
  1. ANDROCUR [Suspect]
     Active Substance: CYPROTERONE ACETATE
     Indication: CONTRACEPTION
     Route: 065
     Dates: end: 20160615
  2. SIMPONI [Suspect]
     Active Substance: GOLIMUMAB
     Indication: SPONDYLOARTHROPATHY
     Route: 058
     Dates: start: 201603, end: 201605
  3. HUMIRA [Suspect]
     Active Substance: ADALIMUMAB
     Indication: SPONDYLOARTHROPATHY
     Route: 058
  4. SIMPONI [Suspect]
     Active Substance: GOLIMUMAB
     Indication: CROHN^S DISEASE
  5. HUMIRA [Suspect]
     Active Substance: ADALIMUMAB
     Indication: CROHN^S DISEASE
     Route: 058
     Dates: start: 20150316
  6. HUMIRA [Suspect]
     Active Substance: ADALIMUMAB
     Route: 058
     Dates: start: 201602, end: 201603

REACTIONS (3)
  - Meningioma [Recovered/Resolved with Sequelae]
  - Drug ineffective [Unknown]
  - Hallucination, auditory [Unknown]

NARRATIVE: CASE EVENT DATE: 20160615
